FAERS Safety Report 17221403 (Version 1)
Quarter: 2020Q1

REPORT INFORMATION
  Report Type: Spontaneous
  Country: FR (occurrence: FR)
  Receive Date: 20200101
  Receipt Date: 20200101
  Transmission Date: 20200409
  Serious: Yes (Hospitalization)
  Sender: FDA-Public Use
  Company Number: FR-AUROBINDO-AUR-APL-2019-108542

PATIENT
  Age: 13 Year
  Sex: Female
  Weight: 53 kg

DRUGS (3)
  1. IBUPROFEN. [Suspect]
     Active Substance: IBUPROFEN
     Indication: PRODUCT USED FOR UNKNOWN INDICATION
     Dosage: 4.9 GRAM, TOTOAL
     Route: 048
     Dates: start: 20190404
  2. PARACETAMOL [Suspect]
     Active Substance: ACETAMINOPHEN
     Indication: PRODUCT USED FOR UNKNOWN INDICATION
     Dosage: 8 GRAM, TOTOAL
     Route: 048
     Dates: start: 20190404
  3. ANTARENE [Suspect]
     Active Substance: IBUPROFEN SODIUM
     Indication: PRODUCT USED FOR UNKNOWN INDICATION
     Dosage: UNK, INADDITION TO IBUPROFEN ANTARENE HALF PACK
     Route: 065

REACTIONS (1)
  - Abdominal pain [Recovered/Resolved]

NARRATIVE: CASE EVENT DATE: 20190404
